FAERS Safety Report 24224357 (Version 1)
Quarter: 2024Q3

REPORT INFORMATION
  Report Type: Spontaneous
  Country: IN (occurrence: IN)
  Receive Date: 20240819
  Receipt Date: 20240819
  Transmission Date: 20241016
  Serious: Yes (Death, Hospitalization)
  Sender: MYLAN
  Company Number: IN-MYLANLABS-2024M1076774

PATIENT
  Age: 33 Year
  Sex: Male

DRUGS (9)
  1. METHYLPREDNISOLONE [Suspect]
     Active Substance: METHYLPREDNISOLONE
     Indication: Immunosuppressant drug therapy
     Dosage: 500 MG + 500 MG
     Route: 065
  2. TACROLIMUS [Suspect]
     Active Substance: TACROLIMUS
     Indication: Immunosuppressant drug therapy
     Dosage: UNK
     Route: 065
  3. MYCOPHENOLATE MOFETIL [Suspect]
     Active Substance: MYCOPHENOLATE MOFETIL
     Indication: Immunosuppressant drug therapy
     Dosage: UNK
     Route: 065
  4. BASILIXIMAB [Suspect]
     Active Substance: BASILIXIMAB
     Indication: Immunosuppressant drug therapy
     Dosage: 20 MILLIGRAM; 20MG IN 50 ML NORMAL SALINE OVER 30MIN
     Route: 065
  5. PREDNISOLONE [Suspect]
     Active Substance: PREDNISOLONE
     Indication: Immunosuppressant drug therapy
     Dosage: UNK
     Route: 065
  6. SALINE [Concomitant]
     Active Substance: SODIUM CHLORIDE
     Indication: Vehicle solution use
     Dosage: 20MG OF BASILIXIMAB  IN 50 ML NORMAL SALINE OVER 30MIN
     Route: 065
  7. MEROPENEM [Concomitant]
     Active Substance: MEROPENEM
     Indication: Antibiotic prophylaxis
     Dosage: UNK
     Route: 065
  8. TARGOCID [Concomitant]
     Active Substance: TEICOPLANIN
     Indication: Antibiotic prophylaxis
     Dosage: UNK
     Route: 065
  9. SEPTRAN [Concomitant]
     Indication: Antibiotic prophylaxis
     Dosage: UNK
     Route: 065

REACTIONS (5)
  - Aortic aneurysm rupture [Fatal]
  - Circulatory collapse [Fatal]
  - Aspergillus infection [Fatal]
  - Haemorrhage [Fatal]
  - Drug ineffective [Fatal]
